FAERS Safety Report 19332490 (Version 1)
Quarter: 2021Q2

REPORT INFORMATION
  Report Type: Spontaneous
  Country: DE (occurrence: DE)
  Receive Date: 20210529
  Receipt Date: 20210529
  Transmission Date: 20210717
  Serious: Yes (Disabling)
  Sender: FDA-Public Use
  Company Number: DE-ACCORD-226245

PATIENT
  Age: 25 Year
  Sex: Male
  Weight: 80 kg

DRUGS (3)
  1. RISPERIDONE. [Concomitant]
     Active Substance: RISPERIDONE
     Dosage: FROM 0.5 TO 1.5 OR 2MG. DEPOSED FROM 1 MG TO 0 AT THE END.
     Dates: start: 201908, end: 202001
  2. TRYPTOPHAN/L? [Concomitant]
     Active Substance: TRYPTOPHAN
     Indication: DEPRESSED MOOD
  3. SERTRALINE [Suspect]
     Active Substance: SERTRALINE HYDROCHLORIDE
     Indication: DEPRESSION
     Dosage: IT STARTED WITH 25MG AND INCREASED TO 100MG.
     Route: 048
     Dates: start: 20190828, end: 20200316

REACTIONS (6)
  - Ejaculation failure [Recovered/Resolved]
  - Sexual dysfunction [Not Recovered/Not Resolved]
  - Erectile dysfunction [Not Recovered/Not Resolved]
  - Adverse reaction [Not Recovered/Not Resolved]
  - Loss of libido [Not Recovered/Not Resolved]
  - Genital hypoaesthesia [Not Recovered/Not Resolved]

NARRATIVE: CASE EVENT DATE: 20200316
